FAERS Safety Report 17170405 (Version 1)
Quarter: 2019Q4

REPORT INFORMATION
  Report Type: Report from Study
  Country: DE (occurrence: DE)
  Receive Date: 20191218
  Receipt Date: 20191218
  Transmission Date: 20200122
  Serious: Yes (Other)
  Sender: FDA-Public Use
  Company Number: DE-PFIZER INC-2019539183

PATIENT
  Age: 49 Year
  Sex: Female

DRUGS (1)
  1. EPIRUBICIN HCL [Suspect]
     Active Substance: EPIRUBICIN HYDROCHLORIDE
     Indication: HER-2 POSITIVE BREAST CANCER
     Dosage: 50 MG, WEEKLY
     Route: 042
     Dates: start: 20170320

REACTIONS (3)
  - Diarrhoea [Recovered/Resolved]
  - Polyneuropathy [Unknown]
  - Sinus node dysfunction [Recovered/Resolved]

NARRATIVE: CASE EVENT DATE: 20170407
